FAERS Safety Report 10372966 (Version 2)
Quarter: 2014Q3

REPORT INFORMATION
  Report Type: Spontaneous
  Country: US (occurrence: US)
  Receive Date: 20140808
  Receipt Date: 20140808
  Transmission Date: 20150326
  Serious: No
  Sender: FDA-Public Use
  Company Number: US-BRISTOL-MYERS SQUIBB COMPANY-19866912

PATIENT
  Age: 62 Year
  Sex: Female

DRUGS (1)
  1. SPRYCEL [Suspect]
     Active Substance: DASATINIB
     Indication: EOSINOPHILIA
     Dosage: TABS
     Route: 048
     Dates: start: 201202

REACTIONS (3)
  - Off label use [Unknown]
  - Periodontal disease [Unknown]
  - Alopecia [Unknown]
